FAERS Safety Report 10717350 (Version 1)
Quarter: 2015Q1

REPORT INFORMATION
  Report Type: Spontaneous
  Country: IT (occurrence: IT)
  Receive Date: 20150116
  Receipt Date: 20150116
  Transmission Date: 20150721
  Serious: Yes (Other)
  Sender: FDA-Public Use
  Company Number: IT-BAXTER-2015BAX001455

PATIENT
  Age: 51 Year

DRUGS (6)
  1. DOXORUBICIN [Suspect]
     Active Substance: DOXORUBICIN
     Indication: RENAL CELL CARCINOMA
     Dosage: ON DAY 1 AS PART OF THE INSTITUTIONAL PROTOCOL
     Route: 065
     Dates: start: 200909
  2. DACARBAZINE. [Suspect]
     Active Substance: DACARBAZINE
     Dosage: ON DAY 1-3 WAS AGAIN ADMINISTERED
     Route: 065
     Dates: start: 201202
  3. EPIRUBICIN [Suspect]
     Active Substance: EPIRUBICIN
     Indication: RENAL CELL CARCINOMA
     Dosage: ON DAY 1-3
     Route: 065
     Dates: start: 201003
  4. DACARBAZINE. [Suspect]
     Active Substance: DACARBAZINE
     Indication: RENAL CELL CARCINOMA
     Dosage: ON DAY 1-3
     Route: 065
     Dates: start: 201003
  5. HOLOXAN [Suspect]
     Active Substance: IFOSFAMIDE
     Indication: RENAL CELL CARCINOMA
     Dosage: ON DAY 1-3 AS PART OF THE INSTITUTIONAL PROTOCOL
     Route: 065
     Dates: start: 200909
  6. HOLOXAN [Suspect]
     Active Substance: IFOSFAMIDE
     Dosage: WEEKLYL PUMP INFUSION FOR 3 CYCLES UNTIL A FURTHER PROGRESSION OF HEPATIC AND LYMPH NODE DISEASE WAS
     Route: 065

REACTIONS (1)
  - Disease progression [Recovered/Resolved]
